FAERS Safety Report 4565278-2 (Version None)
Quarter: 2005Q1

REPORT INFORMATION
  Report Type: 
  Country: None (occurrence: None)
  Receive Date: 20050131
  Receipt Date: 20050119
  Transmission Date: 20050727
  Serious: Yes (Hospitalization)
  Sender: FDA-Public Use
  Company Number: IT-MERCK-0501ITA00022

PATIENT
  Age: 37 Year
  Sex: Male

DRUGS (10)
  1. SINGULAIR [Suspect]
     Indication: ASTHMA
     Route: 048
     Dates: start: 20011101
  2. PREDNISONE [Suspect]
     Route: 048
     Dates: start: 20011101
  3. PREDNISONE [Suspect]
     Route: 048
     Dates: start: 20020101
  4. PREDNISONE [Suspect]
     Route: 048
     Dates: start: 20020101
  5. CORTICOSTEROIDS (UNSPECIFIED) [Concomitant]
     Route: 055
     Dates: start: 20011101
  6. CYCLOPHOSPHAMIDE [Concomitant]
     Route: 051
     Dates: start: 20020401
  7. BUDESONIDE AND FORMOTEROL FUMARATE [Concomitant]
     Route: 055
     Dates: start: 20020401
  8. GABAPENTIN [Concomitant]
     Route: 048
  9. OMEPRAZOLE [Concomitant]
     Route: 048
     Dates: start: 20020401
  10. [THERAPY UNSPECIFIED] [Concomitant]
     Route: 055
     Dates: start: 20011101

REACTIONS (1)
  - ALLERGIC GRANULOMATOUS ANGIITIS [None]
